FAERS Safety Report 9688606 (Version 1)
Quarter: 2013Q4

REPORT INFORMATION
  Report Type: Spontaneous
  Country: VN (occurrence: None)
  Receive Date: 20131113
  Receipt Date: 20131113
  Transmission Date: 20140711
  Serious: Yes (Other)
  Sender: FDA-Public Use
  Company Number: 2013P1020803

PATIENT
  Age: 24 Month
  Sex: Female

DRUGS (1)
  1. ZINACEF [Suspect]
     Indication: ANTIBIOTIC THERAPY

REACTIONS (3)
  - Convulsion [None]
  - Cyanosis [None]
  - Meningitis [None]
